FAERS Safety Report 6133503-2 (Version None)
Quarter: 2009Q1

REPORT INFORMATION
  Report Type: 
  Country: None (occurrence: None)
  Receive Date: 20090326
  Receipt Date: 20090319
  Transmission Date: 20090719
  Serious: Yes (Hospitalization)
  Sender: FDA-Public Use
  Company Number: GB-ABBOTT-08P-167-0493595-00

PATIENT
  Sex: Female

DRUGS (5)
  1. HUMIRA [Suspect]
     Indication: CROHN'S DISEASE
     Route: 058
     Dates: start: 20080716, end: 20081113
  2. ESOMEPRAZOLE [Concomitant]
     Indication: DRUG USE FOR UNKNOWN INDICATION
     Route: 048
  3. CITALOPRAM HYDROBROMIDE [Concomitant]
     Indication: DRUG USE FOR UNKNOWN INDICATION
     Route: 048
  4. DIAZEPAM [Concomitant]
     Indication: DRUG USE FOR UNKNOWN INDICATION
     Route: 048
  5. CONTRACEPTIVE INJECTION [Concomitant]
     Indication: CONTRACEPTION
     Route: 050

REACTIONS (8)
  - ABSCESS LIMB [None]
  - AXILLARY MASS [None]
  - GROIN ABSCESS [None]
  - LOCALISED INFECTION [None]
  - MASS [None]
  - MENSTRUAL DISORDER [None]
  - PANIC ATTACK [None]
  - PREMENSTRUAL SYNDROME [None]
